FAERS Safety Report 4926452-6 (Version None)
Quarter: 2006Q1

REPORT INFORMATION
  Report Type: 
  Country: None (occurrence: None)
  Receive Date: 20060228
  Receipt Date: 20051129
  Transmission Date: 20060701
  Serious: No
  Sender: FDA-Public Use
  Company Number: US-GLAXOSMITHKLINE-A0583855A

PATIENT
  Age: 28 Year
  Sex: Female

DRUGS (2)
  1. LAMICTAL [Suspect]
     Indication: BIPOLAR DISORDER
     Dosage: 25MG PER DAY
     Route: 048
     Dates: start: 20051124
  2. STRATTERA [Concomitant]

REACTIONS (5)
  - CONTUSION [None]
  - DRY SKIN [None]
  - PRURITUS [None]
  - SKIN DISCOLOURATION [None]
  - URTICARIA [None]
